FAERS Safety Report 13716543 (Version 1)
Quarter: 2017Q3

REPORT INFORMATION
  Report Type: Spontaneous
  Country: JP (occurrence: JP)
  Receive Date: 20170705
  Receipt Date: 20170705
  Transmission Date: 20171127
  Serious: Yes (Other)
  Sender: FDA-Public Use
  Company Number: PHJP2017JP021064

PATIENT
  Sex: Male

DRUGS (1)
  1. STALEVO [Suspect]
     Active Substance: CARBIDOPA\ENTACAPONE\LEVODOPA
     Indication: PARKINSON^S DISEASE
     Dosage: 1DF: LEVODOPA 100 MG/CARBIDOPA 10 MG/ENTACAPONE 100 MG)
     Route: 048

REACTIONS (2)
  - Dysphagia [Unknown]
  - Parkinson^s disease [Unknown]
